FAERS Safety Report 8343489-8 (Version None)
Quarter: 2012Q2

REPORT INFORMATION
  Report Type: 
  Country: None (occurrence: None)
  Receive Date: 20120508
  Receipt Date: 20120504
  Transmission Date: 20120825
  Serious: Yes (Hospitalization, Other)
  Sender: FDA-Public Use
  Company Number: PHHY2012AU038166

PATIENT
  Sex: Male

DRUGS (1)
  1. SANDOSTATIN LAR [Suspect]
     Indication: CARCINOID SYNDROME
     Dosage: 30 MG, UNK
     Route: 030

REACTIONS (3)
  - SEPSIS [None]
  - CHILLS [None]
  - PLATELET COUNT DECREASED [None]
